FAERS Safety Report 21621078 (Version 1)
Quarter: 2022Q4

REPORT INFORMATION
  Report Type: Report from Study
  Country: US (occurrence: US)
  Receive Date: 20221121
  Receipt Date: 20221121
  Transmission Date: 20230113
  Serious: No
  Sender: FDA-Public Use
  Company Number: US-ABBVIE-22K-163-4490181-00

PATIENT
  Sex: Male

DRUGS (2)
  1. RINVOQ [Suspect]
     Active Substance: UPADACITINIB
     Indication: Rheumatoid arthritis
     Dosage: END DATE: DUE TO PARTIAL DATE THUS NOT CAPTURED AS 2022?STRENGTH: 15 MG
     Route: 048
     Dates: start: 202206
  2. RINVOQ [Suspect]
     Active Substance: UPADACITINIB
     Indication: Rheumatoid arthritis
     Dosage: START DATE: 2022 (SINCE PARTIAL DATE THUS NOT CAPTURED)?15 MILLIGRAM
     Route: 048

REACTIONS (11)
  - Epistaxis [Recovered/Resolved]
  - Paranasal sinus haemorrhage [Recovered/Resolved]
  - Haemoptysis [Recovered/Resolved]
  - Mobility decreased [Unknown]
  - Joint range of motion decreased [Unknown]
  - Grip strength decreased [Unknown]
  - Unevaluable event [Unknown]
  - Drug ineffective [Unknown]
  - Headache [Unknown]
  - General physical condition abnormal [Unknown]
  - Pain [Unknown]

NARRATIVE: CASE EVENT DATE: 20220101
